FAERS Safety Report 6305466-8 (Version None)
Quarter: 2009Q3

REPORT INFORMATION
  Report Type: 
  Country: None (occurrence: None)
  Receive Date: 20090811
  Receipt Date: 20090731
  Transmission Date: 20100115
  Serious: Yes (Hospitalization)
  Sender: FDA-Public Use
  Company Number: PHHY2009JP30909

PATIENT
  Age: 50 Year
  Sex: Male

DRUGS (2)
  1. VOLTAREN [Suspect]
     Indication: POST HERPETIC NEURALGIA
     Dosage: UNK
     Route: 048
     Dates: start: 20090201
  2. CARBAMAZEPINE [Suspect]
     Indication: POST HERPETIC NEURALGIA
     Route: 048

REACTIONS (7)
  - GASTRIC ULCER PERFORATION [None]
  - GASTROINTESTINAL ULCER [None]
  - HAEMATEMESIS [None]
  - LAPAROTOMY [None]
  - PAIN [None]
  - PERITONEAL DISORDER [None]
  - POST HERPETIC NEURALGIA [None]
